FAERS Safety Report 7207488-1 (Version None)
Quarter: 2010Q4

REPORT INFORMATION
  Report Type: 
  Country: None (occurrence: None)
  Receive Date: 20101221
  Receipt Date: 20101214
  Transmission Date: 20110411
  Serious: Yes (Other)
  Sender: FDA-Public Use
  Company Number: TUK2010A00299

PATIENT
  Age: 63 Year
  Sex: Male

DRUGS (7)
  1. COMPETACT (PIOGLITAZONE HYDROCHLORIDE, METFORMIN HYDROCHLORIDE) [Suspect]
     Indication: DIABETES MELLITUS
     Dosage: 2 DF (1 DF, 2 IN 1 D), ORAL
     Route: 048
     Dates: start: 20101019
  2. IRBESARTAN [Concomitant]
  3. LERCANIPIDINE [Concomitant]
  4. ATORVASTATIN CALCIUM [Concomitant]
  5. GLICLAZIDE MR [Concomitant]
  6. EZETIMIBE [Concomitant]
  7. ALISKIREN (OTHER ANTIHYPERTENSIVES) [Concomitant]

REACTIONS (5)
  - ABDOMINAL PAIN [None]
  - CHEST PAIN [None]
  - HYPERHIDROSIS [None]
  - MYOCARDIAL INFARCTION [None]
  - NAUSEA [None]
